FAERS Safety Report 4958739-5 (Version None)
Quarter: 2006Q1

REPORT INFORMATION
  Report Type: 
  Country: None (occurrence: None)
  Receive Date: 20060330
  Receipt Date: 20060322
  Transmission Date: 20060701
  Serious: Yes (Life-Threatening)
  Sender: FDA-Public Use
  Company Number: DE-MERCK-0603DEU00138

PATIENT
  Age: 17 Year
  Sex: Female

DRUGS (4)
  1. PRIMAXIN [Suspect]
     Indication: SEPSIS
     Route: 042
     Dates: start: 20060315, end: 20060322
  2. INDOMETHACIN [Concomitant]
     Route: 048
  3. MAGNESIUM HYDROXIDE AND ALUMINUM HYDROXIDE [Concomitant]
     Route: 048
  4. CEFUROXIME SODIUM [Concomitant]
     Indication: TONSILLITIS
     Route: 051

REACTIONS (10)
  - ALANINE AMINOTRANSFERASE INCREASED [None]
  - ANOREXIA [None]
  - ASPARTATE AMINOTRANSFERASE INCREASED [None]
  - BLOOD ALBUMIN DECREASED [None]
  - BLOOD BILIRUBIN INCREASED [None]
  - BLOOD CHOLINESTERASE DECREASED [None]
  - BLOOD LACTATE DEHYDROGENASE INCREASED [None]
  - GAMMA-GLUTAMYLTRANSFERASE INCREASED [None]
  - PYREXIA [None]
  - VOMITING [None]
